FAERS Safety Report 10172615 (Version 2)
Quarter: 2014Q2

REPORT INFORMATION
  Report Type: Report from Study
  Country: DE (occurrence: DE)
  Receive Date: 20140515
  Receipt Date: 20140515
  Transmission Date: 20141212
  Serious: Yes (Other)
  Sender: FDA-Public Use
  Company Number: DE-ABBVIE-11P-062-0855449-00

PATIENT
  Age: 47 Year
  Sex: Female
  Weight: 61 kg

DRUGS (4)
  1. HUMIRA [Suspect]
     Indication: PSORIATIC ARTHROPATHY
     Route: 058
     Dates: start: 20101215, end: 20140331
  2. METHOTREXAT [Concomitant]
     Indication: PSORIATIC ARTHROPATHY
     Dosage: 15MG PER WEEK
     Dates: start: 200907
  3. FOLIC ACID [Concomitant]
     Indication: PRODUCT USED FOR UNKNOWN INDICATION
  4. DICLOFENAC [Concomitant]
     Indication: PRODUCT USED FOR UNKNOWN INDICATION
     Dosage: 75MG OD
     Route: 048
     Dates: start: 201012

REACTIONS (1)
  - Hypoacusis [Not Recovered/Not Resolved]
